FAERS Safety Report 9069694 (Version 1)
Quarter: 2013Q1

REPORT INFORMATION
  Report Type: Report from Study
  Country: US (occurrence: US)
  Receive Date: 20130215
  Receipt Date: 20130215
  Transmission Date: 20140127
  Serious: Yes (Other)
  Sender: FDA-Public Use
  Company Number: US-US-EMD SERONO, INC.-7193068

PATIENT
  Sex: Male
  Weight: 22 kg

DRUGS (6)
  1. SAIZEN [(SOMATROPIN (RDNA ORIGIN) FOR INJECTION)] [Suspect]
     Indication: GROWTH HORMONE DEFICIENCY
     Route: 058
     Dates: start: 20111125
  2. PREVACID [LANSOPRAZOLE] [Concomitant]
     Indication: PRODUCT USED FOR UNKNOWN INDICATION
     Route: 048
  3. CLONIDINE HCL [Concomitant]
     Indication: AUTISM
     Route: 048
  4. MIRALAX [POLYETHYLENE GLYCOL] [Concomitant]
     Indication: PRODUCT USED FOR UNKNOWN INDICATION
  5. ADDERALL [AMPHETAMINE DEXTROAMPHETAMINE XR] [Concomitant]
     Indication: PRODUCT USED FOR UNKNOWN INDICATION
     Route: 048
  6. ZYRTEC [CETIRIZINE HCL] [Concomitant]
     Indication: URTICARIA
     Dosage: 1-2 TEASPOONS
     Route: 048

REACTIONS (8)
  - Autism [Unknown]
  - Mood altered [Unknown]
  - Migraine [Not Recovered/Not Resolved]
  - Aortic disorder [Not Recovered/Not Resolved]
  - Micturition urgency [Not Recovered/Not Resolved]
  - Aspartate aminotransferase increased [Unknown]
  - Alanine aminotransferase increased [Unknown]
  - Haemoglobin increased [Unknown]
